FAERS Safety Report 10143863 (Version 1)
Quarter: 2014Q2

REPORT INFORMATION
  Report Type: Spontaneous
  Country: US (occurrence: US)
  Receive Date: 20140430
  Receipt Date: 20140430
  Transmission Date: 20141212
  Serious: Yes (Other)
  Sender: FDA-Public Use
  Company Number: US-ASTRAZENECA-2014SE28120

PATIENT
  Age: 36 Year
  Sex: Male
  Weight: 65.8 kg

DRUGS (9)
  1. QUETIAPINE FUMARATE [Suspect]
     Indication: SCHIZOPHRENIA
     Route: 048
     Dates: start: 201306
  2. QUETIAPINE FUMARATE [Suspect]
     Indication: INSOMNIA
     Route: 048
     Dates: start: 201306
  3. QUETIAPINE FUMARATE [Suspect]
     Indication: CONVULSION
     Route: 048
     Dates: start: 201306
  4. QUETIAPINE FUMARATE [Suspect]
     Indication: SCHIZOPHRENIA
     Route: 048
     Dates: start: 20140418
  5. QUETIAPINE FUMARATE [Suspect]
     Indication: INSOMNIA
     Route: 048
     Dates: start: 20140418
  6. QUETIAPINE FUMARATE [Suspect]
     Indication: CONVULSION
     Route: 048
     Dates: start: 20140418
  7. LYRICA [Concomitant]
     Indication: CONVULSION
     Route: 048
  8. VIMPAT [Concomitant]
     Indication: CONVULSION
     Route: 048
  9. ZONETRAN [Concomitant]
     Indication: CONVULSION
     Route: 048

REACTIONS (20)
  - Memory impairment [Unknown]
  - Drug ineffective [Unknown]
  - Intentional product misuse [Unknown]
  - Injury [Unknown]
  - Convulsion [Unknown]
  - Psychotic disorder [Unknown]
  - Anger [Unknown]
  - Mania [Unknown]
  - Psychomotor hyperactivity [Unknown]
  - Dysarthria [Unknown]
  - Agitation [Unknown]
  - Dysphonia [Unknown]
  - Delusion [Unknown]
  - Hallucination, auditory [Unknown]
  - Insomnia [Unknown]
  - Confusional state [Unknown]
  - Malaise [Unknown]
  - Fatigue [Unknown]
  - Muscle twitching [Unknown]
  - Muscle contractions involuntary [Unknown]
